FAERS Safety Report 8187719-4 (Version None)
Quarter: 2012Q1

REPORT INFORMATION
  Report Type: 
  Country: None (occurrence: None)
  Receive Date: 20120306
  Receipt Date: 20120125
  Transmission Date: 20120608
  Serious: Yes (Other)
  Sender: FDA-Public Use
  Company Number: US-GLAXOSMITHKLINE-A0963128A

PATIENT
  Age: 31 Year
  Sex: Female

DRUGS (4)
  1. CLONAZEPAM [Concomitant]
     Dates: start: 20111228
  2. LAMICTAL [Suspect]
     Indication: BIPOLAR DISORDER
     Route: 048
     Dates: start: 20111228, end: 20120124
  3. CRANBERRY FRUIT EXTRACT [Concomitant]
  4. RISPERIDONE [Concomitant]
     Dates: start: 20120124

REACTIONS (7)
  - LYMPHADENOPATHY [None]
  - LIP OEDEMA [None]
  - VULVOVAGINAL PRURITUS [None]
  - RASH MACULAR [None]
  - OROPHARYNGEAL BLISTERING [None]
  - STEVENS-JOHNSON SYNDROME [None]
  - STOMATITIS [None]
